FAERS Safety Report 10547707 (Version 1)
Quarter: 2014Q4

REPORT INFORMATION
  Report Type: Spontaneous
  Country: US (occurrence: None)
  Receive Date: 20141024
  Receipt Date: 20141024
  Transmission Date: 20150529
  Serious: Yes (Death)
  Sender: FDA-Public Use
  Company Number: 2014100042

PATIENT
  Age: 78 Year
  Sex: Male

DRUGS (10)
  1. ASPAVOR (ATORVASTATIN CALCIUM) [Concomitant]
  2. PURICOS (ALLOPURINOL) [Concomitant]
  3. FLOMAX [Concomitant]
     Active Substance: TAMSULOSIN HYDROCHLORIDE
  4. XARELTO [Concomitant]
     Active Substance: RIVAROXABAN
  5. SEREPAX (OXAZEPAM) [Concomitant]
  6. CILIFT (CITALOPRAM HYDROBROMIDE) [Concomitant]
  7. DUOVENT HFA (FENOTEROL HYDROBROMIDE, IPRAPTROPIUM BROMIDE) [Concomitant]
  8. UNAT (TORASEMIDE) [Suspect]
     Active Substance: TORSEMIDE
     Indication: POLYURIA
     Route: 048
  9. LYRICA [Concomitant]
     Active Substance: PREGABALIN
  10. ECOTRIN (ACETYLSALICYCLIC ACID) [Concomitant]

REACTIONS (1)
  - Malaise [None]

NARRATIVE: CASE EVENT DATE: 20140923
